FAERS Safety Report 4678137-1 (Version None)
Quarter: 2005Q2

REPORT INFORMATION
  Report Type: 
  Country: None (occurrence: None)
  Receive Date: 20050527
  Receipt Date: 20050523
  Transmission Date: 20051028
  Serious: Yes (Disabling, Other)
  Sender: FDA-Public Use
  Company Number: UKP05000182

PATIENT
  Age: 78 Year
  Sex: 0
  Weight: 82 kg

DRUGS (6)
  1. ACTONEL [Suspect]
     Indication: PROPHYLAXIS
     Dosage: 35 MG, 1/WEEK, ORAL
     Route: 048
     Dates: start: 20050109, end: 20050110
  2. OMEPRAZOLE [Concomitant]
  3. PREDNISONE [Concomitant]
  4. PIZOTIFEN (PIZOTIFEN) [Concomitant]
  5. ADCAL-D3 (COLECALCIFEROL, CALCIUM CARBONATE) [Concomitant]
  6. ACETAMINOPHEN [Concomitant]

REACTIONS (2)
  - DEAFNESS [None]
  - TINNITUS [None]
